FAERS Safety Report 8692597 (Version 2)
Quarter: 2012Q4

REPORT INFORMATION
  Report Type: 
  Country: US (occurrence: US)
  Receive Date: 20120730
  Receipt Date: 20121228
  Transmission Date: 20130627
  Serious: Yes (Hospitalization, Other)
  Sender: FDA-Public Use
  Company Number: US-009507513-1207USA008775

PATIENT

DRUGS (1)
  1. NUVARING [Suspect]
     Indication: CONTRACEPTION
     Dosage: UNK
     Route: 067
     Dates: start: 200909, end: 2010

REACTIONS (8)
  - Pulmonary infarction [Unknown]
  - Pulmonary embolism [Unknown]
  - Deep vein thrombosis [Unknown]
  - Fibroma [Unknown]
  - Allergic sinusitis [Unknown]
  - Female sterilisation [Unknown]
  - Ovarian cyst [Unknown]
  - Migraine [Unknown]
